FAERS Safety Report 9058511 (Version 2)
Quarter: 2013Q1

REPORT INFORMATION
  Report Type: Report from Study
  Country: US (occurrence: US)
  Receive Date: 20130211
  Receipt Date: 20130227
  Transmission Date: 20140127
  Serious: Yes (Hospitalization)
  Sender: FDA-Public Use
  Company Number: US-BRISTOL-MYERS SQUIBB COMPANY-17359142

PATIENT
  Age: 67 Year
  Sex: Male
  Weight: 70.8 kg

DRUGS (23)
  1. CETUXIMAB [Suspect]
     Indication: HEAD AND NECK CANCER
     Dosage: 12SEP12-12SEP12:400MG/M2?19DEC12-23JAN13:250MG/M2 (36 DAYS).
     Route: 042
     Dates: start: 20120912, end: 20130123
  2. CARBOPLATIN [Suspect]
     Indication: HEAD AND NECK CANCER
     Dosage: 1DF=AUC5.?ON 24-JAN-2013, CARBOPLATIN WAS DISCONTINUED DUE TO DISEASE PROGRESSION
     Route: 042
     Dates: start: 20120912, end: 20121226
  3. 5-FLUOROURACIL [Suspect]
     Indication: HEAD AND NECK CANCER
     Dosage: ON 24-JAN-2013, 5-FLUOROURACIL WAS DISCONTINUED DUE TO DISEASE PROGRESSION.
     Route: 042
     Dates: start: 20120912, end: 20121226
  4. PROCHLORPERAZINE [Concomitant]
     Indication: NAUSEA
  5. PROCHLORPERAZINE [Concomitant]
     Indication: VOMITING
  6. LOPERAMIDE [Concomitant]
     Indication: DIARRHOEA
  7. LORAZEPAM [Concomitant]
     Indication: INSOMNIA
  8. MAGNESIUM HYDROXIDE [Concomitant]
     Indication: DIARRHOEA
  9. OLANZAPINE [Concomitant]
     Indication: NAUSEA
  10. TRAMADOL [Concomitant]
     Indication: PAIN
  11. TWOCAL HN [Concomitant]
  12. ZINC OXIDE [Concomitant]
     Indication: RASH
  13. CYANOCOBALAMINE [Concomitant]
  14. MECLIZINE [Concomitant]
  15. MULTIVITAMINS + MINERALS [Concomitant]
  16. JEVITY [Concomitant]
  17. HYPROMELLOSE [Concomitant]
  18. CARBOXYMETHYLCELLULOSE SODIUM [Concomitant]
  19. CHLORHEXIDINE GLUCONATE [Concomitant]
     Dosage: MOUTH WASH
  20. GUAIFENESIN [Concomitant]
     Indication: COUGH
  21. HYDROCODONE + ACETAMINOPHEN [Concomitant]
     Indication: PAIN
  22. HYDROCORTISONE CREAM [Concomitant]
     Indication: SKIN DISORDER
  23. LEVOTHYROXINE [Concomitant]
     Indication: THYROID DISORDER

REACTIONS (2)
  - Hyponatraemia [Recovered/Resolved]
  - Diarrhoea [Recovered/Resolved]
